FAERS Safety Report 22191651 (Version 3)
Quarter: 2023Q2

REPORT INFORMATION
  Report Type: Report from Study
  Country: US (occurrence: US)
  Receive Date: 20230410
  Receipt Date: 20230518
  Transmission Date: 20230722
  Serious: Yes (Other)
  Sender: FDA-Public Use
  Company Number: US-JAZZ PHARMACEUTICALS-2023-US-007717

PATIENT
  Sex: Female

DRUGS (13)
  1. XYWAV [Suspect]
     Active Substance: CALCIUM OXYBATE\MAGNESIUM OXYBATE\POTASSIUM OXYBATE\SODIUM OXYBATE
     Indication: Narcolepsy
     Dosage: UNK
     Route: 048
     Dates: start: 20230331
  2. XYWAV [Suspect]
     Active Substance: CALCIUM OXYBATE\MAGNESIUM OXYBATE\POTASSIUM OXYBATE\SODIUM OXYBATE
     Indication: Cataplexy
     Dosage: UNK
     Dates: start: 20230402
  3. XYWAV [Suspect]
     Active Substance: CALCIUM OXYBATE\MAGNESIUM OXYBATE\POTASSIUM OXYBATE\SODIUM OXYBATE
     Indication: Somnolence
     Dosage: 2.5 GRAM
     Dates: start: 20230407
  4. XYWAV [Suspect]
     Active Substance: CALCIUM OXYBATE\MAGNESIUM OXYBATE\POTASSIUM OXYBATE\SODIUM OXYBATE
     Dosage: 2.25 GRAM, BID
  5. XYWAV [Suspect]
     Active Substance: CALCIUM OXYBATE\MAGNESIUM OXYBATE\POTASSIUM OXYBATE\SODIUM OXYBATE
     Dosage: 3 GRAM, BID
  6. CANNABIDIOL\HERBALS [Suspect]
     Active Substance: CANNABIDIOL\HERBALS
     Indication: Musculoskeletal stiffness
     Dosage: UNK
  7. CELEBREX [Suspect]
     Active Substance: CELECOXIB
     Indication: Product used for unknown indication
     Dosage: UNK
  8. OXYCODONE [Suspect]
     Active Substance: OXYCODONE
     Indication: Product used for unknown indication
     Dosage: UNK
  9. TYLENOL [Suspect]
     Active Substance: ACETAMINOPHEN
     Indication: Product used for unknown indication
     Dosage: UNK
  10. TIZANIDINE [Suspect]
     Active Substance: TIZANIDINE
     Indication: Product used for unknown indication
     Dosage: UNK
  11. LUNESTA [Suspect]
     Active Substance: ESZOPICLONE
     Indication: Product used for unknown indication
     Dosage: UNK
  12. OXYCODONE HYDROCHLORIDE [Concomitant]
     Active Substance: OXYCODONE HYDROCHLORIDE
     Indication: Product used for unknown indication
     Dosage: UNK
     Dates: start: 20230223
  13. ELIQUIS [Concomitant]
     Active Substance: APIXABAN
     Indication: Product used for unknown indication
     Dosage: UNK
     Dates: start: 20230302

REACTIONS (38)
  - Blood pressure increased [Recovered/Resolved]
  - Hip arthroplasty [Unknown]
  - Palpitations [Unknown]
  - Moaning [Unknown]
  - Feeling abnormal [Unknown]
  - Dry mouth [Unknown]
  - Chills [Unknown]
  - Erythema [Unknown]
  - Nausea [Unknown]
  - Illness [Unknown]
  - Swelling [Recovering/Resolving]
  - Restless legs syndrome [Unknown]
  - Condition aggravated [Unknown]
  - Vitamin B6 decreased [Unknown]
  - Ocular discomfort [Unknown]
  - Feeling hot [Unknown]
  - Abdominal discomfort [Unknown]
  - Thinking abnormal [Unknown]
  - Pain [Unknown]
  - Paraesthesia [Unknown]
  - Hunger [Unknown]
  - Unevaluable event [Recovering/Resolving]
  - Snoring [Unknown]
  - Malabsorption [Unknown]
  - Myalgia [Unknown]
  - Anaemia [Unknown]
  - Nerve compression [Unknown]
  - Retching [Unknown]
  - Psychotic disorder [Unknown]
  - Thirst [Unknown]
  - Mouth breathing [Unknown]
  - Contraindicated product administered [Unknown]
  - Alopecia [Unknown]
  - Nasopharyngitis [Unknown]
  - Treatment noncompliance [Unknown]
  - Intentional dose omission [Unknown]
  - Incorrect product administration duration [Unknown]
  - Wrong technique in product usage process [Unknown]
